FAERS Safety Report 9454249 (Version 3)
Quarter: 2014Q1

REPORT INFORMATION
  Report Type: Report from Study
  Country: ES (occurrence: DE)
  Receive Date: 20130812
  Receipt Date: 20140220
  Transmission Date: 20141002
  Serious: Yes (Life-Threatening, Hospitalization)
  Sender: FDA-Public Use
  Company Number: DE-FRI-1000047655

PATIENT
  Age: 55 Year
  Sex: Male
  Weight: 55 kg

DRUGS (4)
  1. ACLIDINIUM [Suspect]
     Route: 055
     Dates: start: 20130724
  2. FORMOTEROL 12 CYCLOHALER [Concomitant]
     Dosage: 2 DOSAGE FORMS
     Dates: start: 20130724
  3. MERONEM [Concomitant]
     Dates: start: 20130803
  4. SALBUTAMOL, MDI [Concomitant]

REACTIONS (3)
  - Cardiac arrest [Unknown]
  - Brain hypoxia [Unknown]
  - Syncope [Unknown]
